FAERS Safety Report 14896256 (Version 5)
Quarter: 2022Q2

REPORT INFORMATION
  Report Type: Other
  Country: US (occurrence: None)
  Receive Date: 20180515
  Receipt Date: 20220607
  Transmission Date: 20220720
  Serious: Yes (Hospitalization, Other)
  Sender: FDA-Public Use
  Company Number: US-ROCHE-1935113

PATIENT
  Sex: Male
  Weight: 138.92 kg

DRUGS (20)
  1. RITUXAN [Suspect]
     Active Substance: RITUXIMAB
     Indication: Chronic inflammatory demyelinating polyradiculoneuropathy
     Dosage: DATE OF SERVICE: 27/OCT/2021, 10/NOV/2021, 15/MAY/2022, 01/JUN/2022?DOSE RECEIVED DATES:15/MAR/2018,
     Route: 042
     Dates: start: 20180301
  2. RITUXAN [Suspect]
     Active Substance: RITUXIMAB
     Indication: Meralgia paraesthetica
  3. RITUXAN [Suspect]
     Active Substance: RITUXIMAB
     Indication: Oropharyngeal cancer
  4. CELLCEPT [Suspect]
     Active Substance: MYCOPHENOLATE MOFETIL
     Indication: Chronic inflammatory demyelinating polyradiculoneuropathy
     Dosage: 4 TABLETS TWICE DAILY
     Route: 048
  5. CELLCEPT [Suspect]
     Active Substance: MYCOPHENOLATE MOFETIL
     Route: 048
  6. HYDROCHLOROTHIAZIDE [Concomitant]
     Active Substance: HYDROCHLOROTHIAZIDE
     Route: 048
  7. METFORMIN HYDROCHLORIDE [Concomitant]
     Active Substance: METFORMIN HYDROCHLORIDE
     Dosage: WITH MEALS
     Route: 048
  8. LEVEMIR [Concomitant]
     Active Substance: INSULIN DETEMIR
     Dosage: 100 UNIT/ML
     Route: 058
  9. LISINOPRIL [Concomitant]
     Active Substance: LISINOPRIL
     Route: 048
  10. LIPITOR [Concomitant]
     Active Substance: ATORVASTATIN CALCIUM
     Route: 048
  11. TERAZOSIN HYDROCHLORIDE [Concomitant]
     Active Substance: TERAZOSIN HYDROCHLORIDE
     Route: 048
  12. HUMALOG [Concomitant]
     Active Substance: INSULIN LISPRO
     Dosage: 100UNIT/ ML SOLUTION
     Route: 058
  13. ASPIRIN [Concomitant]
     Active Substance: ASPIRIN
     Route: 048
  14. VITAMIN D3 [Concomitant]
     Active Substance: CHOLECALCIFEROL
     Dosage: 2000 UNIT CAPSULE
     Route: 048
  15. OMEGA 3 [Concomitant]
     Active Substance: CAPSAICIN
     Route: 048
  16. VITAMIN C [Concomitant]
     Active Substance: ASCORBIC ACID
     Route: 048
  17. REFRESH TEARS [Concomitant]
     Active Substance: CARBOXYMETHYLCELLULOSE SODIUM
     Dosage: 0.5% SOLUTION 1 DROP 24 TIMES A DAY
  18. LYRICA [Concomitant]
     Active Substance: PREGABALIN
     Dosage: NOTE: TAKING 150 MG AT 5 PM AS NEEDED
     Route: 048
  19. FUROSEMIDE [Concomitant]
     Active Substance: FUROSEMIDE
     Route: 048
  20. POTASSIUM CHLORIDE [Concomitant]
     Active Substance: POTASSIUM CHLORIDE
     Dosage: ONE TABLET
     Route: 048

REACTIONS (7)
  - Demyelination [Unknown]
  - Neuralgia [Unknown]
  - Asthenia [Unknown]
  - Meralgia paraesthetica [Unknown]
  - Treatment failure [Unknown]
  - Off label use [Unknown]
  - COVID-19 [Unknown]
